FAERS Safety Report 4817183-1 (Version None)
Quarter: 2005Q4

REPORT INFORMATION
  Report Type: 
  Country: None (occurrence: None)
  Receive Date: 20051018
  Receipt Date: 20050301
  Transmission Date: 20060501
  Serious: Yes (Other)
  Sender: FDA-Public Use
  Company Number: PHEH2004US12528

PATIENT
  Age: 54 Year
  Sex: Female

DRUGS (4)
  1. ZOMETA [Suspect]
     Indication: MULTIPLE MYELOMA
     Dosage: 4 MG EVERY MONTH
     Dates: start: 20020101, end: 20040901
  2. AREDIA [Suspect]
     Indication: MULTIPLE MYELOMA
     Dosage: 90 MG EVERY MONTH
     Dates: start: 19990701, end: 20021201
  3. THALIDOMIDE (THALIDOMIDE) [Concomitant]
  4. DECADRON /CAN/ (DEXAMETHASONE) [Concomitant]

REACTIONS (1)
  - OSTEONECROSIS [None]
